FAERS Safety Report 13393281 (Version 1)
Quarter: 2017Q1

REPORT INFORMATION
  Report Type: Spontaneous
  Country: US (occurrence: US)
  Receive Date: 20170331
  Receipt Date: 20170331
  Transmission Date: 20170429
  Serious: No
  Sender: FDA-Public Use
  Company Number: US-SEPTODONT-201603363

PATIENT
  Age: 56 Year
  Sex: Male

DRUGS (1)
  1. LIDOCAINE HYDROCHLORIDE 2% WITH EPINEPHRINE 1:100,000 INJECTION [Suspect]
     Active Substance: EPINEPHRINE\LIDOCAINE HYDROCHLORIDE
     Indication: LOCAL ANAESTHESIA
     Dosage: 1 CARPULE ADMINISTERED USING 30G SYRINGE ON TOOTH #3
     Route: 004

REACTIONS (3)
  - Mouth swelling [Recovered/Resolved]
  - Injection site ulcer [Recovering/Resolving]
  - Lip swelling [Recovered/Resolved]

NARRATIVE: CASE EVENT DATE: 20160210
